FAERS Safety Report 9812730 (Version 1)
Quarter: 2014Q1

REPORT INFORMATION
  Report Type: Spontaneous
  Country: GB (occurrence: GB)
  Receive Date: 20140113
  Receipt Date: 20140113
  Transmission Date: 20141002
  Serious: Yes (Disabling)
  Sender: FDA-Public Use
  Company Number: GB-TEVA-455331ISR

PATIENT
  Age: 56 Year
  Sex: Female
  Weight: 88.9 kg

DRUGS (3)
  1. TRIMETHOPRIM TEVA [Suspect]
     Indication: URINARY TRACT INFECTION
     Dosage: 400 MILLIGRAM DAILY; 1 X 200 MG TWICE PER DAY EVENLY SPACED
     Route: 048
     Dates: start: 20131221, end: 20131227
  2. NAPROXEN [Concomitant]
  3. LEVOTHYROXINE [Concomitant]

REACTIONS (11)
  - Pyrexia [Recovered/Resolved]
  - Chills [Recovered/Resolved]
  - Nausea [Recovering/Resolving]
  - Pruritus generalised [Recovered/Resolved with Sequelae]
  - Headache [Not Recovered/Not Resolved]
  - Renal pain [Recovered/Resolved]
  - Disorientation [Not Recovered/Not Resolved]
  - Balance disorder [Not Recovered/Not Resolved]
  - Nightmare [Recovered/Resolved]
  - Insomnia [Recovered/Resolved]
  - Myalgia [Recovering/Resolving]
